FAERS Safety Report 17819212 (Version 1)
Quarter: 2020Q2

REPORT INFORMATION
  Report Type: Spontaneous
  Country: IT (occurrence: IT)
  Receive Date: 20200523
  Receipt Date: 20200523
  Transmission Date: 20200714
  Serious: Yes (Other)
  Sender: FDA-Public Use
  Company Number: IT-ACCORD-182395

PATIENT
  Age: 66 Year
  Sex: Male

DRUGS (7)
  1. OXALIPLATIN ACCORD [Suspect]
     Active Substance: OXALIPLATIN
     Indication: ADENOCARCINOMA GASTRIC
     Route: 042
     Dates: start: 20200325, end: 20200410
  2. APROVEL [Concomitant]
     Active Substance: IRBESARTAN
     Route: 048
  3. DOCETAXEL ACCORD [Suspect]
     Active Substance: DOCETAXEL
     Indication: ADENOCARCINOMA GASTRIC
     Dosage: CONCENTRATE FOR CONCENTRATE FOR SOLUTION FOR INFUSION
     Route: 042
     Dates: start: 20200325, end: 20200410
  4. FLUOROURACIL AHCL [Suspect]
     Active Substance: FLUOROURACIL
     Indication: ADENOCARCINOMA GASTRIC
     Route: 042
     Dates: start: 20200325, end: 20200410
  5. EUTIROX [Concomitant]
     Active Substance: LEVOTHYROXINE SODIUM
     Route: 048
  6. PRADAXA [Suspect]
     Active Substance: DABIGATRAN ETEXILATE MESYLATE
     Indication: THROMBOSIS PROPHYLAXIS
     Dosage: 75 MG
     Route: 048
  7. LOPRESOR [Concomitant]
     Active Substance: METOPROLOL
     Route: 048

REACTIONS (1)
  - Deep vein thrombosis [Recovering/Resolving]

NARRATIVE: CASE EVENT DATE: 20200414
